FAERS Safety Report 8772850 (Version 2)
Quarter: 2012Q4

REPORT INFORMATION
  Report Type: 
  Country: ES (occurrence: ES)
  Receive Date: 20120907
  Receipt Date: 20121004
  Transmission Date: 20130627
  Serious: Yes (Life-Threatening, Hospitalization)
  Sender: FDA-Public Use
  Company Number: ES-PFIZER INC-2012217111

PATIENT
  Age: 73 Year
  Sex: Male

DRUGS (4)
  1. SUTENT [Suspect]
     Indication: RENAL CANCER
     Dosage: 50 mg, 1x/day
     Route: 048
     Dates: start: 20090501, end: 20090508
  2. CLOPIDOGREL [Interacting]
     Indication: ISCHAEMIC CARDIOMYOPATHY
     Dosage: 75 mg, 1x/day
     Route: 048
     Dates: start: 2007, end: 20090508
  3. PREDNISONE [Interacting]
     Indication: RENAL CANCER
     Dosage: 60 mg, 1x/day
     Route: 048
     Dates: start: 20090501
  4. ACETYLSALICYLIC ACID [Interacting]
     Indication: ISCHAEMIC CARDIOMYOPATHY
     Dosage: 100 mg, 1x/day
     Route: 048
     Dates: start: 2003, end: 20090508

REACTIONS (2)
  - Drug interaction [Recovered/Resolved]
  - Upper gastrointestinal haemorrhage [Recovered/Resolved]
